FAERS Safety Report 15315730 (Version 1)
Quarter: 2018Q3

REPORT INFORMATION
  Report Type: Spontaneous
  Country: US (occurrence: US)
  Receive Date: 20180815
  Receipt Date: 20180815
  Transmission Date: 20181010
  Serious: No
  Sender: FDA-Public Use
  Company Number: None

PATIENT
  Age: 36 Year
  Sex: Female
  Weight: 143.1 kg

DRUGS (3)
  1. METHYLPHENIDATE ER 18MG [Suspect]
     Active Substance: METHYLPHENIDATE
     Indication: ATTENTION DEFICIT/HYPERACTIVITY DISORDER
     Dosage: ?          QUANTITY:1 CAPSULE(S);?
     Route: 048
  2. METHYLPHENIDATE ER 27MG [Suspect]
     Active Substance: METHYLPHENIDATE HYDROCHLORIDE
     Indication: ATTENTION DEFICIT/HYPERACTIVITY DISORDER
     Dosage: ?          QUANTITY:1 CAPSULE(S);?
     Route: 048
  3. METHYLPHENIDATE ER 27MG [Suspect]
     Active Substance: METHYLPHENIDATE HYDROCHLORIDE
     Indication: FIBROMYALGIA
     Dosage: ?          QUANTITY:1 CAPSULE(S);?
     Route: 048

REACTIONS (12)
  - Vision blurred [None]
  - Therapeutic response shortened [None]
  - Product quality issue [None]
  - Headache [None]
  - Dizziness [None]
  - Disturbance in attention [None]
  - Product substitution issue [None]
  - Drug effect faster than expected [None]
  - Tinnitus [None]
  - Impaired work ability [None]
  - Malaise [None]
  - Loss of personal independence in daily activities [None]

NARRATIVE: CASE EVENT DATE: 20170620
